FAERS Safety Report 15418877 (Version 1)
Quarter: 2018Q3

REPORT INFORMATION
  Report Type: Spontaneous
  Country: US (occurrence: US)
  Receive Date: 20180914
  Receipt Date: 20180914
  Transmission Date: 20181010
  Serious: No
  Sender: FDA-Public Use
  Company Number: None

PATIENT
  Sex: Female

DRUGS (1)
  1. HUMATROPE [Suspect]
     Active Substance: SOMATROPIN
     Indication: HYPOPITUITARISM
     Dosage: ?          OTHER DOSE:1.9MG;?
     Route: 058
     Dates: start: 20180206, end: 20180913

REACTIONS (5)
  - Product substitution issue [None]
  - Crying [None]
  - Injection site pain [None]
  - Injection site haemorrhage [None]
  - Lack of injection site rotation [None]
